FAERS Safety Report 24815875 (Version 4)
Quarter: 2025Q3

REPORT INFORMATION
  Report Type: Report from Study
  Country: CA (occurrence: CA)
  Receive Date: 20250107
  Receipt Date: 20250901
  Transmission Date: 20251021
  Serious: Yes (Hospitalization, Other)
  Sender: ALEXION PHARMACEUTICALS
  Company Number: CA-AstraZeneca-CH-00779348A

PATIENT
  Sex: Male
  Weight: 79.819 kg

DRUGS (4)
  1. BENRALIZUMAB [Suspect]
     Active Substance: BENRALIZUMAB
     Indication: Asthma
  2. BENRALIZUMAB [Suspect]
     Active Substance: BENRALIZUMAB
  3. BRICANYL [Concomitant]
     Active Substance: TERBUTALINE SULFATE
  4. INDACATEROL ACETATE\MOMETASONE FUROATE [Concomitant]
     Active Substance: INDACATEROL ACETATE\MOMETASONE FUROATE

REACTIONS (7)
  - Arthralgia [Recovering/Resolving]
  - Joint swelling [Recovering/Resolving]
  - Crystal arthropathy [Recovering/Resolving]
  - Ligament injury [Unknown]
  - Joint injury [Unknown]
  - Joint swelling [Unknown]
  - Arthralgia [Unknown]
